FAERS Safety Report 18651499 (Version 1)
Quarter: 2020Q4

REPORT INFORMATION
  Report Type: Report from Study
  Country: FR (occurrence: FR)
  Receive Date: 20201222
  Receipt Date: 20201222
  Transmission Date: 20210114
  Serious: Yes (Death)
  Sender: FDA-Public Use
  Company Number: FR-MYLANLABS-2020M1103971

PATIENT
  Age: 61 Year
  Sex: Female

DRUGS (4)
  1. MELPHALAN. [Suspect]
     Active Substance: MELPHALAN
     Indication: LICHEN MYXOEDEMATOSUS
     Dosage: 10 MILLIGRAM/SQ. METER(DAYS 1-4)
     Route: 048
  2. DEXAMETHASONE. [Suspect]
     Active Substance: DEXAMETHASONE
     Indication: LICHEN MYXOEDEMATOSUS
     Dosage: 40 MILLIGRAM(DAYS 1-4)
     Route: 048
  3. IMMUNOGLOBULINS NOS [Suspect]
     Active Substance: IMMUNE GLOBULIN NOS
     Indication: LICHEN MYXOEDEMATOSUS
     Dosage: 2 GRAM PER KILOGRAM, MONTHLY
     Route: 042
  4. BORTEZOMIB. [Suspect]
     Active Substance: BORTEZOMIB
     Indication: LICHEN MYXOEDEMATOSUS
     Dosage: 1.3 MILLIGRAM/SQ. METER(DAYS 8, 15 AND 22)
     Route: 042

REACTIONS (3)
  - Drug ineffective [Fatal]
  - Sepsis [Fatal]
  - Off label use [Unknown]
